FAERS Safety Report 25070484 (Version 3)
Quarter: 2025Q2

REPORT INFORMATION
  Report Type: Spontaneous
  Country: FR (occurrence: FR)
  Receive Date: 20250312
  Receipt Date: 20250512
  Transmission Date: 20250717
  Serious: No
  Sender: PFIZER
  Company Number: FR-PFIZER INC-PV202500027993

PATIENT
  Age: 16 Year
  Sex: Male

DRUGS (1)
  1. NGENLA [Suspect]
     Active Substance: SOMATROGON-GHLA
     Dosage: 28 MG, WEEKLY
     Route: 058

REACTIONS (1)
  - Injection site pain [Not Recovered/Not Resolved]
